APPROVED DRUG PRODUCT: SEVELAMER HYDROCHLORIDE
Active Ingredient: SEVELAMER HYDROCHLORIDE
Strength: 400MG
Dosage Form/Route: TABLET;ORAL
Application: A206883 | Product #001 | TE Code: AB
Applicant: MACLEODS PHARMACEUTICALS LTD
Approved: May 26, 2023 | RLD: No | RS: No | Type: RX